FAERS Safety Report 9486310 (Version 2)
Quarter: 2013Q3

REPORT INFORMATION
  Report Type: Spontaneous
  Country: US (occurrence: US)
  Receive Date: 20130829
  Receipt Date: 20130829
  Transmission Date: 20140515
  Serious: No
  Sender: FDA-Public Use
  Company Number: US-PFIZER INC-2012144925

PATIENT
  Age: 49 Year
  Sex: Female

DRUGS (4)
  1. LYRICA [Suspect]
     Dosage: 75 MG X2 IN MORNING, 75MG X3 BEFORE SLEEPING
     Route: 048
     Dates: end: 20130823
  2. CLONAZEPAM [Concomitant]
     Dosage: 2 MG, UNK
  3. TYLENOL PM [Concomitant]
     Dosage: UNK
  4. LORTAB [Concomitant]
     Dosage: HYDROCODONE BITARTRATE 10/ PARACETAMOL 325

REACTIONS (4)
  - Intentional drug misuse [Recovered/Resolved]
  - Pain [Not Recovered/Not Resolved]
  - Withdrawal syndrome [Not Recovered/Not Resolved]
  - Insomnia [Not Recovered/Not Resolved]
